FAERS Safety Report 11005077 (Version 3)
Quarter: 2015Q3

REPORT INFORMATION
  Report Type: Report from Study
  Country: US (occurrence: US)
  Receive Date: 20150409
  Receipt Date: 20150814
  Transmission Date: 20151125
  Serious: Yes (Hospitalization, Other)
  Sender: FDA-Public Use
  Company Number: US-GILEAD-2015-0147844

PATIENT
  Age: 21 Year
  Sex: Female

DRUGS (3)
  1. AMBRISENTAN [Suspect]
     Active Substance: AMBRISENTAN
     Indication: PULMONARY HYPERTENSION
     Dosage: 10 MG, QD
     Route: 065
     Dates: start: 20111104
  2. REMODULIN [Concomitant]
     Active Substance: TREPROSTINIL
     Dates: start: 20110302
  3. AMBRISENTAN [Suspect]
     Active Substance: AMBRISENTAN
     Indication: RIGHT-TO-LEFT CARDIAC SHUNT

REACTIONS (4)
  - Pulmonary hypertensive crisis [Unknown]
  - Dyspnoea [Recovered/Resolved]
  - Chest pain [Recovered/Resolved]
  - Catheter placement [Recovered/Resolved]

NARRATIVE: CASE EVENT DATE: 20150326
